FAERS Safety Report 9916294 (Version 1)
Quarter: 2014Q1

REPORT INFORMATION
  Report Type: Spontaneous
  Country: US (occurrence: US)
  Receive Date: 20140221
  Receipt Date: 20140221
  Transmission Date: 20141002
  Serious: Yes (Death, Other)
  Sender: FDA-Public Use
  Company Number: US-SA-2014SA022485

PATIENT
  Age: 36 Year
  Sex: Female

DRUGS (1)
  1. FABRAZYME [Suspect]
     Indication: FABRY^S DISEASE
     Route: 042
     Dates: start: 20080415

REACTIONS (3)
  - Pneumonia [Fatal]
  - Hip fracture [Not Recovered/Not Resolved]
  - Fall [Unknown]
